FAERS Safety Report 24560825 (Version 1)
Quarter: 2024Q4

REPORT INFORMATION
  Report Type: Spontaneous
  Country: CN (occurrence: CN)
  Receive Date: 20241029
  Receipt Date: 20241029
  Transmission Date: 20250114
  Serious: Yes (Hospitalization, Disabling)
  Sender: PFIZER
  Company Number: CN-PFIZER INC-PV202400138904

PATIENT
  Age: 15 Month
  Sex: Male
  Weight: 10 kg

DRUGS (1)
  1. ZITHROMAX [Suspect]
     Active Substance: AZITHROMYCIN DIHYDRATE
     Indication: Anti-infective therapy
     Dosage: 0.1 G, 1X/DAY
     Route: 048
     Dates: start: 20240902, end: 20241007

REACTIONS (5)
  - Dysphoria [Recovering/Resolving]
  - Infantile vomiting [Recovering/Resolving]
  - Heart rate increased [Recovering/Resolving]
  - Discomfort [Recovering/Resolving]
  - Hepatic function abnormal [Recovering/Resolving]

NARRATIVE: CASE EVENT DATE: 20240908
